FAERS Safety Report 6014782-9 (Version None)
Quarter: 2008Q4

REPORT INFORMATION
  Report Type: 
  Country: None (occurrence: None)
  Receive Date: 20081219
  Receipt Date: 20081027
  Transmission Date: 20090506
  Serious: Yes (Other)
  Sender: FDA-Public Use
  Company Number: TW-ASTRAZENECA-2008AP08332

PATIENT
  Age: 20 Year
  Sex: Female
  Weight: 64 kg

DRUGS (2)
  1. MARCAINE [Suspect]
     Indication: SPINAL ANAESTHESIA
     Dosage: 2 ML HYPERBARIC WITH GLUCOSE
     Route: 037
     Dates: start: 20081010, end: 20081010
  2. MARCAINE [Suspect]
     Indication: CAESAREAN SECTION
     Dosage: 2 ML HYPERBARIC WITH GLUCOSE
     Route: 037
     Dates: start: 20081010, end: 20081010

REACTIONS (1)
  - DRUG INEFFECTIVE [None]
